FAERS Safety Report 23611603 (Version 1)
Quarter: 2024Q1

REPORT INFORMATION
  Report Type: Spontaneous
  Country: CN (occurrence: CN)
  Receive Date: 20240308
  Receipt Date: 20240308
  Transmission Date: 20240410
  Serious: Yes (Other)
  Sender: FDA-Public Use
  Company Number: CN-009507513-2403CHN000640

PATIENT
  Age: 64 Year
  Sex: Female
  Weight: 53.4 kg

DRUGS (18)
  1. INVANZ [Suspect]
     Active Substance: ERTAPENEM SODIUM
     Indication: Soft tissue infection
     Dosage: 0.5 GRAM, QD
     Route: 041
     Dates: start: 20240122, end: 20240131
  2. INVANZ [Suspect]
     Active Substance: ERTAPENEM SODIUM
     Indication: Type 2 diabetes mellitus
  3. INVANZ [Suspect]
     Active Substance: ERTAPENEM SODIUM
     Indication: Pneumonia
  4. INVANZ [Suspect]
     Active Substance: ERTAPENEM SODIUM
     Indication: Ankle fracture
  5. INVANZ [Suspect]
     Active Substance: ERTAPENEM SODIUM
     Indication: Hypertension
  6. INVANZ [Suspect]
     Active Substance: ERTAPENEM SODIUM
     Indication: Renal failure
  7. INVANZ [Suspect]
     Active Substance: ERTAPENEM SODIUM
     Indication: Nephrogenic anaemia
  8. INVANZ [Suspect]
     Active Substance: ERTAPENEM SODIUM
     Indication: Hypoalbuminaemia
  9. INVANZ [Suspect]
     Active Substance: ERTAPENEM SODIUM
     Indication: Osteoporosis
  10. SODIUM CHLORIDE [Concomitant]
     Active Substance: SODIUM CHLORIDE
     Indication: Type 2 diabetes mellitus
     Dosage: 100 MILLILITER, QD
     Route: 041
     Dates: start: 20240122, end: 20240131
  11. SODIUM CHLORIDE [Concomitant]
     Active Substance: SODIUM CHLORIDE
     Indication: Soft tissue infection
  12. SODIUM CHLORIDE [Concomitant]
     Active Substance: SODIUM CHLORIDE
     Indication: Pneumonia
  13. SODIUM CHLORIDE [Concomitant]
     Active Substance: SODIUM CHLORIDE
     Indication: Ankle fracture
  14. SODIUM CHLORIDE [Concomitant]
     Active Substance: SODIUM CHLORIDE
     Indication: Hypertension
  15. SODIUM CHLORIDE [Concomitant]
     Active Substance: SODIUM CHLORIDE
     Indication: Renal failure
  16. SODIUM CHLORIDE [Concomitant]
     Active Substance: SODIUM CHLORIDE
     Indication: Nephrogenic anaemia
  17. SODIUM CHLORIDE [Concomitant]
     Active Substance: SODIUM CHLORIDE
     Indication: Hypoalbuminaemia
  18. SODIUM CHLORIDE [Concomitant]
     Active Substance: SODIUM CHLORIDE
     Indication: Osteoporosis

REACTIONS (6)
  - Epilepsy [Unknown]
  - Loss of consciousness [Recovered/Resolved]
  - Generalised tonic-clonic seizure [Unknown]
  - Muscle rigidity [Recovered/Resolved]
  - Muscle twitching [Recovered/Resolved]
  - Product use in unapproved indication [Unknown]

NARRATIVE: CASE EVENT DATE: 20240122
